FAERS Safety Report 9239820 (Version 2)
Quarter: 2013Q2

REPORT INFORMATION
  Report Type: Report from Study
  Country: ID (occurrence: ID)
  Receive Date: 20130418
  Receipt Date: 20130508
  Transmission Date: 20140414
  Serious: Yes (Other)
  Sender: FDA-Public Use
  Company Number: ID-SANOFI-AVENTIS-2013SA037776

PATIENT
  Age: 25 Year
  Sex: Male
  Weight: 54 kg

DRUGS (10)
  1. PRIMAQUINE PHOSPHATE [Suspect]
     Indication: PLASMODIUM VIVAX INFECTION
     Route: 048
     Dates: start: 20130329, end: 20130329
  2. PRIMAQUINE PHOSPHATE [Suspect]
     Indication: PLASMODIUM VIVAX INFECTION
     Route: 048
     Dates: start: 20130330, end: 20130330
  3. PRIMAQUINE PHOSPHATE [Suspect]
     Indication: PLASMODIUM VIVAX INFECTION
     Route: 048
     Dates: start: 20130331, end: 20130331
  4. PRIMAQUINE PHOSPHATE [Suspect]
     Indication: PLASMODIUM VIVAX INFECTION
     Route: 048
     Dates: start: 20130401, end: 20130401
  5. PRIMAQUINE PHOSPHATE [Suspect]
     Indication: PLASMODIUM VIVAX INFECTION
     Route: 048
     Dates: start: 20130402, end: 20130402
  6. PRIMAQUINE PHOSPHATE [Suspect]
     Indication: PLASMODIUM VIVAX INFECTION
     Route: 048
     Dates: start: 20130403, end: 20130403
  7. PRIMAQUINE PHOSPHATE [Suspect]
     Indication: PLASMODIUM VIVAX INFECTION
     Route: 048
     Dates: start: 20130404, end: 20130404
  8. ARTESUNATE/PYRONARIDINE TETRAPHOSPHATE [Suspect]
     Indication: PLASMODIUM VIVAX INFECTION
     Route: 065
     Dates: start: 20130329, end: 20130329
  9. ARTESUNATE/PYRONARIDINE TETRAPHOSPHATE [Suspect]
     Indication: PLASMODIUM VIVAX INFECTION
     Route: 065
     Dates: start: 20130330, end: 20130330
  10. ARTESUNATE/PYRONARIDINE TETRAPHOSPHATE [Suspect]
     Indication: PLASMODIUM VIVAX INFECTION
     Route: 065
     Dates: start: 20130331, end: 20130331

REACTIONS (1)
  - Arrhythmia [Recovering/Resolving]
